FAERS Safety Report 7307509-1 (Version None)
Quarter: 2011Q1

REPORT INFORMATION
  Report Type: 
  Country: None (occurrence: None)
  Receive Date: 20110223
  Receipt Date: 20110217
  Transmission Date: 20110831
  Serious: Yes (Other)
  Sender: FDA-Public Use
  Company Number: US-BRISTOL-MYERS SQUIBB COMPANY-15556822

PATIENT
  Age: 72 Year
  Sex: Female

DRUGS (4)
  1. METFORMIN HCL [Suspect]
  2. PLACEBO [Suspect]
     Indication: TYPE 2 DIABETES MELLITUS
     Dates: start: 20101026
  3. BLINDED: SAXAGLIPTIN [Suspect]
     Indication: TYPE 2 DIABETES MELLITUS
     Dosage: 1 DF= 2.5MG OR 5 MG
     Dates: start: 20101026
  4. INSULIN [Suspect]

REACTIONS (1)
  - GASTROENTERITIS CRYPTOSPORIDIAL [None]
